FAERS Safety Report 11926562 (Version 2)
Quarter: 2016Q1

REPORT INFORMATION
  Report Type: Spontaneous
  Country: US (occurrence: US)
  Receive Date: 20160119
  Receipt Date: 20160316
  Transmission Date: 20160526
  Serious: Yes (Hospitalization, Other)
  Sender: FDA-Public Use
  Company Number: US-ACTAVIS-2016-00778

PATIENT
  Age: 65 Year
  Sex: Female

DRUGS (2)
  1. PACLITAXEL (ATLLC) [Suspect]
     Active Substance: PACLITAXEL
     Indication: OVARIAN CANCER STAGE III
     Dosage: 4 CYCLES
     Route: 033
  2. CISPLATIN. [Concomitant]
     Active Substance: CISPLATIN
     Indication: OVARIAN CANCER STAGE III
     Dosage: 4 CYCLES
     Route: 042

REACTIONS (1)
  - Peritonitis [Recovering/Resolving]
